FAERS Safety Report 23624243 (Version 2)
Quarter: 2024Q4

REPORT INFORMATION
  Report Type: Spontaneous
  Country: US (occurrence: US)
  Receive Date: 20240312
  Receipt Date: 20241007
  Transmission Date: 20250114
  Serious: No
  Sender: BIOGEN
  Company Number: US-BIOGEN-2024BI01243939

PATIENT
  Sex: Female

DRUGS (3)
  1. SKYCLARYS [Suspect]
     Active Substance: OMAVELOXOLONE
     Indication: Friedreich^s ataxia
     Dosage: 150 MILLIGRAM, QD
     Route: 050
     Dates: start: 20230713
  2. SKYCLARYS [Suspect]
     Active Substance: OMAVELOXOLONE
     Dosage: 150 MILLIGRAM, QD
     Route: 050
     Dates: start: 20230713
  3. SKYCLARYS [Suspect]
     Active Substance: OMAVELOXOLONE
     Route: 050
     Dates: start: 20230713

REACTIONS (9)
  - Hepatic enzyme increased [Recovered/Resolved]
  - Candida infection [Unknown]
  - Skin exfoliation [Unknown]
  - Nausea [Unknown]
  - Abdominal distension [Unknown]
  - Product use issue [Unknown]
  - Pain in extremity [Unknown]
  - Muscle spasms [Unknown]
  - Pain [Unknown]

NARRATIVE: CASE EVENT DATE: 20230101
